FAERS Safety Report 26151862 (Version 1)
Quarter: 2025Q4

REPORT INFORMATION
  Report Type: Spontaneous
  Country: CA (occurrence: CA)
  Receive Date: 20251214
  Receipt Date: 20251214
  Transmission Date: 20260117
  Serious: Yes (Hospitalization, Other)
  Sender: ACERUS PHARMACEUTICALS CORPORATION
  Company Number: CA-ACERUSPHRM-2025-CA-000849

PATIENT
  Age: 73 Year
  Sex: Male

DRUGS (16)
  1. TESTOSTERONE [Suspect]
     Active Substance: TESTOSTERONE
     Indication: Product used for unknown indication
     Route: 065
  2. HYDROMORPHONE [Suspect]
     Active Substance: HYDROMORPHONE
     Indication: Abdominal pain
     Route: 065
  3. HYDROXYZINE [Concomitant]
     Active Substance: HYDROXYZINE HYDROCHLORIDE
     Indication: Product used for unknown indication
     Route: 048
  4. METOPROLOL [Suspect]
     Active Substance: METOPROLOL
     Indication: Atrial fibrillation
     Route: 065
  5. MORPHINE [Suspect]
     Active Substance: MORPHINE
     Indication: Product used for unknown indication
     Route: 065
  6. OMALIZUMAB [Suspect]
     Active Substance: OMALIZUMAB
     Indication: Chronic spontaneous urticaria
     Route: 058
  7. ROSUVASTATIN CALCIUM [Concomitant]
     Active Substance: ROSUVASTATIN CALCIUM
     Indication: Product used for unknown indication
     Route: 065
  8. VENTOLIN [Concomitant]
     Active Substance: ALBUTEROL SULFATE
     Indication: Product used for unknown indication
     Route: 048
  9. EBASTINE [Concomitant]
     Active Substance: EBASTINE
     Indication: Product used for unknown indication
     Route: 065
  10. AMMONIUM CHLORIDE\DIPHENHYDRAMINE HYDROCHLORIDE\MENTHOL\SODIUM CITRATE [Concomitant]
     Active Substance: AMMONIUM CHLORIDE\DIPHENHYDRAMINE HYDROCHLORIDE\MENTHOL\SODIUM CITRATE
     Indication: Product used for unknown indication
     Route: 048
  11. APIXABAN [Concomitant]
     Active Substance: APIXABAN
     Indication: Anticoagulant therapy
     Route: 065
  12. BETAMETHASONE DIPROPIONATE\CALCIPOTRIENE [Concomitant]
     Active Substance: BETAMETHASONE DIPROPIONATE\CALCIPOTRIENE
     Indication: Chronic spontaneous urticaria
     Route: 065
  13. BILASTINE [Concomitant]
     Active Substance: BILASTINE
     Indication: Product used for unknown indication
     Route: 048
  14. BUDESONIDE\FORMOTEROL FUMARATE [Concomitant]
     Active Substance: BUDESONIDE\FORMOTEROL FUMARATE
     Indication: Product used for unknown indication
     Route: 055
  15. GLICLAZIDE [Concomitant]
     Active Substance: GLICLAZIDE
     Indication: Product used for unknown indication
     Route: 048
  16. HYDROCORTISONE VALERATE [Concomitant]
     Active Substance: HYDROCORTISONE VALERATE
     Indication: Chronic spontaneous urticaria
     Route: 065

REACTIONS (38)
  - Blood pressure increased [Not Recovered/Not Resolved]
  - Cough [Not Recovered/Not Resolved]
  - Diarrhoea [Not Recovered/Not Resolved]
  - Drug hypersensitivity [Not Recovered/Not Resolved]
  - Drug ineffective [Not Recovered/Not Resolved]
  - Hypersensitivity [Not Recovered/Not Resolved]
  - Ileus [Not Recovered/Not Resolved]
  - Illness [Not Recovered/Not Resolved]
  - Impaired healing [Not Recovered/Not Resolved]
  - Influenza [Not Recovered/Not Resolved]
  - Abdominal pain [Not Recovered/Not Resolved]
  - Lacrimation increased [Not Recovered/Not Resolved]
  - Malaise [Not Recovered/Not Resolved]
  - Middle insomnia [Not Recovered/Not Resolved]
  - Myalgia [Not Recovered/Not Resolved]
  - Nasal congestion [Not Recovered/Not Resolved]
  - Nausea [Not Recovered/Not Resolved]
  - Nocturia [Not Recovered/Not Resolved]
  - Pain in extremity [Not Recovered/Not Resolved]
  - Paraesthesia [Not Recovered/Not Resolved]
  - Product dose omission issue [Not Recovered/Not Resolved]
  - Allergy to chemicals [Not Recovered/Not Resolved]
  - Prostatomegaly [Not Recovered/Not Resolved]
  - Pruritus [Not Recovered/Not Resolved]
  - Psoriasis [Not Recovered/Not Resolved]
  - Rash [Not Recovered/Not Resolved]
  - Skin irritation [Not Recovered/Not Resolved]
  - Skin ulcer [Not Recovered/Not Resolved]
  - Sleep disorder [Not Recovered/Not Resolved]
  - Somnolence [Not Recovered/Not Resolved]
  - Urticaria [Not Recovered/Not Resolved]
  - Vomiting [Not Recovered/Not Resolved]
  - Allergy to metals [Not Recovered/Not Resolved]
  - Angioedema [Not Recovered/Not Resolved]
  - Arthralgia [Not Recovered/Not Resolved]
  - Asthma [Not Recovered/Not Resolved]
  - Asthma exercise induced [Not Recovered/Not Resolved]
  - Basal cell carcinoma [Not Recovered/Not Resolved]
